FAERS Safety Report 4287398-2 (Version None)
Quarter: 2004Q1

REPORT INFORMATION
  Report Type: 
  Country: None (occurrence: None)
  Receive Date: 20040205
  Receipt Date: 20040129
  Transmission Date: 20041129
  Serious: Yes (Hospitalization)
  Sender: FDA-Public Use
  Company Number: TCI2004A00314

PATIENT
  Age: 76 Year
  Sex: Male

DRUGS (10)
  1. LANSOPRAZOLE [Suspect]
     Dosage: PER ORAL
     Route: 048
     Dates: start: 20040123, end: 20040124
  2. FIRSTCIN INTRAVENOUS 1GM (CEFOZOPRAN HYDROCHLORIDE) (INJECTION) [Suspect]
     Indication: PNEUMONIA
     Dosage: 2 G (1 G,2 IN 1 D)
     Route: 042
     Dates: start: 20040123, end: 20040125
  3. BAYASPIRIN (ACETYLSALICYCLIC ACID) (TABLETS) [Concomitant]
  4. THYRADIN S (LEVOTHYROXINE SODIUM) (PREPARATION FOR ORAL USE(NOS)) [Concomitant]
  5. MUCOSTA (REBAMIPIDE) (TABLETS) [Concomitant]
  6. ZYLORIC (ALLOPURINOL) (TABLETS) [Concomitant]
  7. LASIX [Concomitant]
  8. LAC B (LACTOBACILLUS BIFIDUS, LYOPHILIZED) (PREPARATION FOR ORAL USE ( [Concomitant]
  9. ALDACTONE [Concomitant]
  10. URSOSAN (URSODEOXYCHOLIC ACID) (TABLETS) [Concomitant]

REACTIONS (2)
  - DIALYSIS [None]
  - HEPATITIS FULMINANT [None]
